FAERS Safety Report 6984676-0 (Version None)
Quarter: 2010Q3

REPORT INFORMATION
  Report Type: 
  Country: None (occurrence: None)
  Receive Date: 20100914
  Receipt Date: 20100914
  Transmission Date: 20110219
  Serious: No
  Sender: FDA-Public Use
  Company Number: None

PATIENT
  Age: 25 Year
  Sex: Female

DRUGS (14)
  1. LITHIUM CARBONATE [Suspect]
     Dosage: 1500 MG SR PO
     Route: 048
  2. PRENATAL VIT [Concomitant]
  3. RISPERDAL [Concomitant]
  4. METFORMIN [Concomitant]
  5. NICOTINE [Concomitant]
  6. MELATONIN [Concomitant]
  7. DOCUSATE [Concomitant]
  8. ABILIFY [Concomitant]
  9. LORAZEPAM [Concomitant]
  10. QUETIAPINE [Concomitant]
  11. OLANZAPINE [Concomitant]
  12. CLONAZEPAM [Concomitant]
  13. DEPAKOTE [Concomitant]
  14. AMBIEN [Concomitant]

REACTIONS (1)
  - THERAPEUTIC AGENT TOXICITY [None]
